FAERS Safety Report 5119075-X (Version None)
Quarter: 2006Q3

REPORT INFORMATION
  Report Type: 
  Country: None (occurrence: None)
  Receive Date: 20060927
  Receipt Date: 20060913
  Transmission Date: 20061208
  Serious: Yes (Other)
  Sender: FDA-Public Use
  Company Number: 06C284

PATIENT
  Sex: Female
  Weight: 67.1324 kg

DRUGS (1)
  1. FOUGERA WHITE PETROLATUM [Suspect]
     Indication: SKIN DISORDER
     Dosage: TOPICALLY
     Route: 061
     Dates: start: 20060301

REACTIONS (6)
  - CAUSTIC INJURY [None]
  - IMPAIRED HEALING [None]
  - PHARMACEUTICAL PRODUCT COMPLAINT [None]
  - PRURITUS [None]
  - RASH [None]
  - SKIN DISORDER [None]
